FAERS Safety Report 14284886 (Version 1)
Quarter: 2017Q4

REPORT INFORMATION
  Report Type: Spontaneous
  Country: US (occurrence: None)
  Receive Date: 20171214
  Receipt Date: 20171214
  Transmission Date: 20180321
  Serious: Yes (Hospitalization)
  Sender: FDA-Public Use
  Company Number: None

PATIENT
  Sex: Female

DRUGS (7)
  1. OXYCODONE [Concomitant]
     Active Substance: OXYCODONE
  2. CEPHALEXIN. [Concomitant]
     Active Substance: CEPHALEXIN
  3. DULOXETINE. [Concomitant]
     Active Substance: DULOXETINE
  4. OMEPRAZOLE. [Concomitant]
     Active Substance: OMEPRAZOLE
  5. GABAPENTIN. [Concomitant]
     Active Substance: GABAPENTIN
  6. IBRANCE [Suspect]
     Active Substance: PALBOCICLIB
     Indication: BREAST CANCER
     Dosage: 1 CAP QD X21D PO
     Route: 048
     Dates: start: 20171011
  7. DAMARA [Concomitant]
     Active Substance: DESOGESTREL

REACTIONS (1)
  - Hospitalisation [None]
